FAERS Safety Report 7903436-7 (Version None)
Quarter: 2011Q4

REPORT INFORMATION
  Report Type: 
  Country: None (occurrence: None)
  Receive Date: 20111109
  Receipt Date: 20111107
  Transmission Date: 20120403
  Serious: Yes (Death)
  Sender: FDA-Public Use
  Company Number: CA-ABBOTT-11P-028-0872171-00

PATIENT
  Sex: Male
  Weight: 108.96 kg

DRUGS (1)
  1. LUPRON [Suspect]
     Indication: PROSTATE CANCER
     Dosage: 4 MONTHS DEPOT
     Route: 030
     Dates: start: 20080331

REACTIONS (1)
  - DEATH [None]
